FAERS Safety Report 7455201-5 (Version None)
Quarter: 2011Q2

REPORT INFORMATION
  Report Type: 
  Country: None (occurrence: None)
  Receive Date: 20110503
  Receipt Date: 20110422
  Transmission Date: 20111010
  Serious: Yes (Hospitalization)
  Sender: FDA-Public Use
  Company Number: PHHY2011FR34166

PATIENT
  Sex: Male

DRUGS (15)
  1. LASILIX [Concomitant]
     Dosage: 40 MG, UNK
  2. AMLODIPINE [Concomitant]
     Dosage: UNK
  3. ESOMEPRAZOLE [Concomitant]
     Dosage: UNK
  4. DISCOTRINE [Concomitant]
     Dosage: UNK
  5. LOXAPINE HCL [Concomitant]
     Dosage: UNK
  6. TEGRETOL [Suspect]
     Dosage: 200 MG, BID
     Dates: start: 20090901
  7. DAFALGAN [Concomitant]
     Dosage: UNK
  8. TEGRETOL [Suspect]
     Dosage: 200 MG, BID
  9. NOCTRAN [Concomitant]
     Dosage: UNK
  10. KARDEGIC [Concomitant]
     Dosage: UNK
  11. XATRAL [Concomitant]
     Dosage: UNK
  12. ALLOPURINOL [Concomitant]
     Dosage: UNK
  13. TEGRETOL [Suspect]
     Dosage: 400 MG, BID
  14. TAHOR [Concomitant]
     Dosage: UNK
  15. CALCIPARINE [Concomitant]
     Dosage: UNK

REACTIONS (2)
  - BLOOD POTASSIUM INCREASED [None]
  - BLOOD CREATININE INCREASED [None]
